FAERS Safety Report 6184333-7 (Version None)
Quarter: 2009Q2

REPORT INFORMATION
  Report Type: 
  Country: None (occurrence: None)
  Receive Date: 20090508
  Receipt Date: 20090428
  Transmission Date: 20091009
  Serious: Yes (Death)
  Sender: FDA-Public Use
  Company Number: US-WATSON-2009-02357

PATIENT
  Sex: Male

DRUGS (4)
  1. FENTANYL-100 [Suspect]
     Indication: ARTHRITIS
     Dosage: 1 PATCH Q3DAYS
     Route: 062
     Dates: start: 20090201, end: 20090302
  2. FENTANYL-100 [Suspect]
     Indication: BONE DISORDER
     Dosage: 1 PATCH, Q3DAYS
     Route: 062
     Dates: start: 20070101, end: 20090201
  3. INSULIN [Concomitant]
     Indication: DIABETES MELLITUS
     Dosage: UNK
     Route: 065
  4. OTHER UNKNOWN MEDICATIONS WITH UNKNOWN INDICATIONS [Concomitant]
     Indication: DRUG USE FOR UNKNOWN INDICATION
     Dosage: UNK
     Route: 065

REACTIONS (13)
  - ABNORMAL BEHAVIOUR [None]
  - ANOREXIA [None]
  - ARTERIAL INJURY [None]
  - ARTHRITIS [None]
  - DISORIENTATION [None]
  - DRUG INEFFECTIVE [None]
  - DRUG LEVEL INCREASED [None]
  - DYSPNOEA [None]
  - HALLUCINATION [None]
  - HYPOVENTILATION [None]
  - INCOHERENT [None]
  - OVERDOSE [None]
  - URINARY INCONTINENCE [None]
